FAERS Safety Report 12774792 (Version 2)
Quarter: 2021Q2

REPORT INFORMATION
  Report Type: Spontaneous
  Country: US (occurrence: US)
  Receive Date: 20160923
  Receipt Date: 20210502
  Transmission Date: 20210716
  Serious: No
  Sender: FDA-Public Use
  Company Number: US-009507513-1609USA011255

PATIENT
  Sex: Male

DRUGS (3)
  1. ANABOLIC STEROID (UNSPECIFIED) [Concomitant]
     Active Substance: UNSPECIFIED INGREDIENT
     Dosage: UNK
  2. BRIDION [Suspect]
     Active Substance: SUGAMMADEX
     Dosage: UNK, ONCE
  3. BRIDION [Suspect]
     Active Substance: SUGAMMADEX
     Dosage: UNK, ONCE

REACTIONS (1)
  - Drug ineffective [Recovered/Resolved]
